FAERS Safety Report 8531798-9 (Version None)
Quarter: 2012Q3

REPORT INFORMATION
  Report Type: 
  Country: None (occurrence: None)
  Receive Date: 20120711
  Receipt Date: 20120629
  Transmission Date: 20120928
  Serious: Yes (Disabling, Other)
  Sender: FDA-Public Use
  Company Number: 2012-01013

PATIENT
  Age: 49 Year
  Sex: Male

DRUGS (1)
  1. LEVOFLOXACIN [Suspect]
     Indication: SINUSITIS
     Dosage: 500 MG (500 MG, 1 IN 1 D), ORAL
     Route: 048

REACTIONS (11)
  - PAIN [None]
  - CONFUSIONAL STATE [None]
  - RESPIRATORY DISTRESS [None]
  - SPLINTER HAEMORRHAGES [None]
  - OPTIC NEURITIS [None]
  - ACUTE SINUSITIS [None]
  - TOXIC OPTIC NEUROPATHY [None]
  - DIZZINESS [None]
  - COLOUR BLINDNESS ACQUIRED [None]
  - BLINDNESS UNILATERAL [None]
  - PAPILLITIS [None]
